FAERS Safety Report 8239403-6 (Version None)
Quarter: 2012Q1

REPORT INFORMATION
  Report Type: 
  Country: None (occurrence: None)
  Receive Date: 20120326
  Receipt Date: 20120313
  Transmission Date: 20120608
  Serious: Yes (Death, Hospitalization, Other)
  Sender: FDA-Public Use
  Company Number: FK201200789

PATIENT
  Age: 76 Year
  Sex: Male

DRUGS (8)
  1. DEXAMETHASONE SODIUM PHOSPHATE [Suspect]
     Dosage: PER DAY
  2. ALLOPURINOL [Suspect]
     Indication: PRODUCT USED FOR UNKNOWN INDICATION
     Dosage: TWICE DAILY,
  3. IMMUNE GLOBULIN (HUMAN) [Concomitant]
  4. PIDOTIMOD [Concomitant]
  5. MOXIFLOXACIN HCL [Suspect]
     Indication: INFECTION PROPHYLAXIS
  6. ALBUMIN (HUMAN) [Concomitant]
  7. METHYLPREDNISOLONE [Suspect]
     Indication: PRODUCT USED FOR UNKNOWN INDICATION
  8. IMIPENEM/CILASTATIN [Suspect]
     Indication: INFECTION PROPHYLAXIS

REACTIONS (15)
  - DRUG ERUPTION [None]
  - DYSPHAGIA [None]
  - MALNUTRITION [None]
  - METABOLIC ACIDOSIS [None]
  - ANGINA PECTORIS [None]
  - DIABETES MELLITUS [None]
  - ANAEMIA [None]
  - CORONARY ARTERY DISEASE [None]
  - CONDITION AGGRAVATED [None]
  - PULMONARY HAEMORRHAGE [None]
  - ZYGOMYCOSIS [None]
  - HYPOPROTEINAEMIA [None]
  - ACQUIRED EPIDERMOLYSIS BULLOSA [None]
  - HEPATITIS [None]
  - IMMUNE SYSTEM DISORDER [None]
